FAERS Safety Report 4654969-0 (Version None)
Quarter: 2005Q2

REPORT INFORMATION
  Report Type: 
  Country: None (occurrence: None)
  Receive Date: 20050504
  Receipt Date: 20050421
  Transmission Date: 20051028
  Serious: Yes (Hospitalization, Other)
  Sender: FDA-Public Use
  Company Number: 2005063986

PATIENT
  Age: 11 Day
  Sex: Female
  Weight: 3 kg

DRUGS (1)
  1. DOSTINEX [Suspect]
     Indication: BREAST ENGORGEMENT
     Dosage: 0.25 MG (0.25 MG, SINGLE DOSE), TRANSMAMMARY
     Route: 063
     Dates: start: 20010819, end: 20010819

REACTIONS (13)
  - ASTHENIA [None]
  - CRYING [None]
  - DEHYDRATION [None]
  - DRUG EXPOSURE VIA BREAST MILK [None]
  - DYSPNOEA [None]
  - EYES SUNKEN [None]
  - FEEDING PROBLEM IN NEWBORN [None]
  - HYPOGLYCAEMIA NEONATAL [None]
  - HYPOTONIA NEONATAL [None]
  - MUSCLE SPASMS [None]
  - NEONATAL DISORDER [None]
  - PANIC REACTION [None]
  - SKIN DISCOLOURATION [None]
